FAERS Safety Report 8538197-4 (Version None)
Quarter: 2012Q3

REPORT INFORMATION
  Report Type: 
  Country: None (occurrence: None)
  Receive Date: 20120726
  Receipt Date: 20120718
  Transmission Date: 20120928
  Serious: Yes (Hospitalization, Other)
  Sender: FDA-Public Use
  Company Number: US-ASTRAZENECA-2009UW19578

PATIENT
  Age: 36 Year
  Sex: Male
  Weight: 91.6 kg

DRUGS (20)
  1. SEROQUEL [Suspect]
     Dosage: 50 MG TO 400 MG
     Route: 048
     Dates: start: 20070321
  2. PROMETHAZINE [Concomitant]
     Dates: start: 20060828
  3. ATENOLOL [Concomitant]
     Dates: start: 20061218
  4. LORAZEPAM [Concomitant]
     Dates: start: 20070321
  5. LAMICTAL [Concomitant]
     Indication: MOOD SWINGS
     Route: 048
     Dates: start: 20070101
  6. ACETAMINOPHEN AND HYDROCODONE BITARTRATE [Concomitant]
     Dates: start: 20060828
  7. LEXAPRO [Concomitant]
     Dates: start: 20060223
  8. LAMICTAL [Concomitant]
     Dosage: 25 MG-100 MG
     Dates: start: 20070530
  9. PRILOSEC [Concomitant]
     Dates: start: 20060714
  10. CARBAMAZEPINE [Concomitant]
     Dates: start: 20090301
  11. SEROQUEL [Suspect]
     Indication: BIPOLAR DISORDER
     Dosage: 500 MG IN EVENING AND 200 IN THE MORNING
     Route: 048
     Dates: start: 20060101
  12. PHENYTOIN EX/DILATIN [Concomitant]
     Dosage: 100 MG-400 MG
     Dates: start: 20060313
  13. TEMAZEPAM [Concomitant]
     Dates: start: 20070321
  14. CLONAZEPAM [Concomitant]
     Indication: ANXIETY
     Dates: start: 20090301
  15. APAP W/ CODEINE [Concomitant]
     Dosage: 300-30 MG
     Dates: start: 20051121
  16. EFFEXOR XR [Concomitant]
     Dates: start: 20070118
  17. PHENYTOIN EX/DILATIN [Concomitant]
     Indication: CONVULSION
     Route: 048
     Dates: start: 20050101
  18. PROPRANOLOL [Concomitant]
     Dates: start: 20070530
  19. CLONAZEPAM [Concomitant]
     Route: 048
     Dates: start: 20110101
  20. SYNTHROID [Concomitant]
     Indication: HYPOTHYROIDISM
     Route: 048
     Dates: start: 20110101

REACTIONS (10)
  - FALL [None]
  - BIPOLAR DISORDER [None]
  - OVERDOSE [None]
  - DRUG DOSE OMISSION [None]
  - MULTIPLE DRUG OVERDOSE INTENTIONAL [None]
  - HAND FRACTURE [None]
  - DIABETES MELLITUS [None]
  - SUICIDE ATTEMPT [None]
  - MORBID THOUGHTS [None]
  - QUALITY OF LIFE DECREASED [None]
